FAERS Safety Report 7759612-X (Version None)
Quarter: 2011Q3

REPORT INFORMATION
  Report Type: 
  Country: None (occurrence: None)
  Receive Date: 20110919
  Receipt Date: 20110915
  Transmission Date: 20111222
  Serious: Yes (Hospitalization)
  Sender: FDA-Public Use
  Company Number: CO-ROCHE-802508

PATIENT
  Sex: Male
  Weight: 69 kg

DRUGS (1)
  1. MYCOPHENOLATE MOFETIL [Suspect]
     Dosage: DOSE: QD
     Route: 048
     Dates: start: 20060218

REACTIONS (2)
  - CHOLECYSTITIS [None]
  - CHOLELITHIASIS [None]
